FAERS Safety Report 4695093-0 (Version None)
Quarter: 2005Q2

REPORT INFORMATION
  Report Type: 
  Country: None (occurrence: None)
  Receive Date: 20050617
  Receipt Date: 20050606
  Transmission Date: 20051028
  Serious: Yes (Other)
  Sender: FDA-Public Use
  Company Number: 2005084409

PATIENT
  Age: 40 Year
  Sex: Male

DRUGS (2)
  1. DOXAZOSIN (DOXAZOSIN) [Suspect]
     Indication: BENIGN PROSTATIC HYPERPLASIA
     Dosage: 4 MG (4 MG, QD), ORAL
     Route: 048
     Dates: start: 20040101, end: 20050401
  2. DOXAZOSIN (DOXAZOSIN) [Suspect]
     Indication: BENIGN PROSTATIC HYPERPLASIA
     Dosage: 4 MG (4 MG, QD), ORAL
     Route: 048
     Dates: start: 20050401

REACTIONS (2)
  - CALCULUS URINARY [None]
  - URINARY RETENTION [None]
